FAERS Safety Report 20383026 (Version 1)
Quarter: 2022Q1

REPORT INFORMATION
  Report Type: Spontaneous
  Country: IE (occurrence: IE)
  Receive Date: 20220127
  Receipt Date: 20220127
  Transmission Date: 20220423
  Serious: Yes (Hospitalization, Other)
  Sender: FDA-Public Use
  Company Number: IE-NOVARTISPH-NVSC2021IE256920

PATIENT
  Age: 66 Year
  Sex: Male

DRUGS (2)
  1. BEOVU [Suspect]
     Active Substance: BROLUCIZUMAB-DBLL
     Indication: Age-related macular degeneration
     Dosage: 0.05 ML (6 MG), QMO (LEFT EYE)
     Route: 031
     Dates: start: 20210928
  2. BEOVU [Suspect]
     Active Substance: BROLUCIZUMAB-DBLL
     Dosage: 0.05 ML (6 MG), QMO (LEFT EYE)
     Route: 031
     Dates: start: 20211026

REACTIONS (9)
  - Retinal vasculitis [Not Recovered/Not Resolved]
  - Visual impairment [Unknown]
  - Retinal ischaemia [Not Recovered/Not Resolved]
  - Macular oedema [Unknown]
  - Macular ischaemia [Unknown]
  - Retinal exudates [Unknown]
  - Retinal haemorrhage [Unknown]
  - Blindness [Not Recovered/Not Resolved]
  - Anterior chamber flare [Unknown]

NARRATIVE: CASE EVENT DATE: 20211104
